FAERS Safety Report 26036098 (Version 1)
Quarter: 2025Q4

REPORT INFORMATION
  Report Type: Spontaneous
  Country: US (occurrence: US)
  Receive Date: 20251112
  Receipt Date: 20251112
  Transmission Date: 20260118
  Serious: No
  Sender: PURDUE
  Company Number: US-PURDUE-USA-2025-0322014

PATIENT
  Sex: Male

DRUGS (1)
  1. HYDROCODONE BITARTRATE AND ACETAMINOPHEN [Suspect]
     Active Substance: ACETAMINOPHEN\HYDROCODONE BITARTRATE
     Indication: Analgesic therapy
     Dosage: UNK (5 MILLIGRAMS OF HYDROCODONE WITH 300 MILLIGRAMS OF ACETAMINOPHEN)
     Route: 048

REACTIONS (1)
  - Inadequate analgesia [Unknown]
